FAERS Safety Report 5467091-0 (Version None)
Quarter: 2007Q3

REPORT INFORMATION
  Report Type: 
  Country: None (occurrence: None)
  Receive Date: 20070921
  Receipt Date: 20070921
  Transmission Date: 20080115
  Serious: No
  Sender: FDA-Public Use
  Company Number: None

PATIENT
  Age: 44 Year
  Sex: Male
  Weight: 81.6475 kg

DRUGS (3)
  1. PAXIL [Suspect]
     Indication: DEPRESSION
     Dosage: ONE TABLET -40 MG- TWICE DAILY PO
     Route: 048
     Dates: start: 20030701, end: 20061201
  2. PAXIL [Suspect]
     Indication: OBSESSIVE-COMPULSIVE DISORDER
     Dosage: ONE TABLET -40 MG- TWICE DAILY PO
     Route: 048
     Dates: start: 20030701, end: 20061201
  3. PAXIL [Suspect]
     Indication: SOCIAL PHOBIA
     Dosage: ONE TABLET -40 MG- TWICE DAILY PO
     Route: 048
     Dates: start: 20030701, end: 20061201

REACTIONS (3)
  - ANORGASMIA [None]
  - ERECTILE DYSFUNCTION [None]
  - ORGASM ABNORMAL [None]
